FAERS Safety Report 11497783 (Version 2)
Quarter: 2015Q4

REPORT INFORMATION
  Report Type: Spontaneous
  Country: FR (occurrence: FR)
  Receive Date: 20150911
  Receipt Date: 20151218
  Transmission Date: 20160304
  Serious: Yes (Congenital Anomaly, Other)
  Sender: FDA-Public Use
  Company Number: FR-BRISTOL-MYERS SQUIBB COMPANY-BMS-2015-061171

PATIENT

DRUGS (1)
  1. HYDREA [Suspect]
     Active Substance: HYDROXYUREA
     Indication: PRODUCT USED FOR UNKNOWN INDICATION
     Dosage: UNK
     Route: 064

REACTIONS (8)
  - Pulmonary malformation [Unknown]
  - Congenital cardiovascular anomaly [Unknown]
  - Deformity thorax [Unknown]
  - Neck deformity [Unknown]
  - Finger deformity [Unknown]
  - Craniofacial deformity [Unknown]
  - Limb malformation [Unknown]
  - Foetal exposure during pregnancy [Recovered/Resolved]
